FAERS Safety Report 17460879 (Version 1)
Quarter: 2020Q1

REPORT INFORMATION
  Report Type: Spontaneous
  Country: US (occurrence: US)
  Receive Date: 20200226
  Receipt Date: 20200226
  Transmission Date: 20200409
  Serious: Yes (Hospitalization, Other)
  Sender: FDA-Public Use
  Company Number: US-BAUSCH-BL-2020-005511

PATIENT
  Age: 42 Year
  Sex: Male

DRUGS (4)
  1. JYNARQUE [Suspect]
     Active Substance: TOLVAPTAN
     Indication: PRODUCT USED FOR UNKNOWN INDICATION
     Dosage: 45 MILLIGRAM IN THE MORNING, AND 15 MILLIGRAM EIGHT HOURS LATER
     Route: 065
     Dates: start: 20190101, end: 2019
  2. JYNARQUE [Suspect]
     Active Substance: TOLVAPTAN
     Dosage: 60 MILLIGRAM IN THE MORNING, AND 30 MILLIGRAM EIGHT HOURS LATER
     Route: 065
     Dates: start: 2019, end: 2019
  3. JYNARQUE [Suspect]
     Active Substance: TOLVAPTAN
     Dosage: 45 MILLIGRAM IN THE MORNING, AND 15 MILLIGRAM EIGHT HOURS LATER
     Route: 048
     Dates: start: 20191218
  4. CARDIZEM [Suspect]
     Active Substance: DILTIAZEM HYDROCHLORIDE
     Indication: PRODUCT USED FOR UNKNOWN INDICATION
     Route: 065

REACTIONS (4)
  - Dehydration [Unknown]
  - Arrhythmia [Unknown]
  - Cardiac operation [Recovered/Resolved]
  - Oedema peripheral [Unknown]

NARRATIVE: CASE EVENT DATE: 2019
